FAERS Safety Report 5618367-5 (Version None)
Quarter: 2008Q1

REPORT INFORMATION
  Report Type: 
  Country: None (occurrence: None)
  Receive Date: 20080207
  Receipt Date: 20080130
  Transmission Date: 20080703
  Serious: Yes (Other)
  Sender: FDA-Public Use
  Company Number: MX-AVENTIS-200811153GDDC

PATIENT
  Age: 48 Year
  Sex: Female
  Weight: 53 kg

DRUGS (5)
  1. LANTUS [Suspect]
     Indication: TYPE 2 DIABETES MELLITUS
     Route: 058
     Dates: start: 20030101
  2. DIPHENYLHYDANTOIN SODIUM [Concomitant]
     Indication: EPILEPSY
     Dosage: DOSE QUANTITY: 1.5
     Route: 048
     Dates: start: 19920101
  3. MAGNESIUM VALPROATE [Concomitant]
     Indication: EPILEPSY
     Dosage: DOSE QUANTITY: 1.5
     Route: 048
     Dates: start: 19920101
  4. MAGNESIUM VALPROATE [Concomitant]
     Dosage: DOSE QUANTITY: 1
     Route: 048
     Dates: start: 19920101
  5. DIACEPAM [Concomitant]
     Indication: EPILEPSY
     Dosage: DOSE QUANTITY: 1
     Route: 048
     Dates: start: 19920101

REACTIONS (6)
  - ANXIETY [None]
  - CONDITION AGGRAVATED [None]
  - CONVULSION [None]
  - DEPRESSED MOOD [None]
  - FATIGUE [None]
  - GAIT DISTURBANCE [None]
